FAERS Safety Report 4327947-9 (Version None)
Quarter: 2004Q1

REPORT INFORMATION
  Report Type: 
  Country: None (occurrence: None)
  Receive Date: 20040325
  Receipt Date: 20040301
  Transmission Date: 20041129
  Serious: Yes (Disabling)
  Sender: FDA-Public Use
  Company Number: 2004UW03735

PATIENT
  Age: 68 Year
  Sex: Female

DRUGS (7)
  1. ARIMIDEX [Suspect]
     Dates: start: 20030601
  2. FOSAMAX [Concomitant]
  3. ALLOPURINOL [Concomitant]
  4. LISINOPRIL [Concomitant]
  5. ZOCOR [Concomitant]
  6. EFFEXOR [Concomitant]
  7. VIOXX [Concomitant]

REACTIONS (7)
  - ARTHROPATHY [None]
  - DEPRESSION [None]
  - DIFFICULTY IN WALKING [None]
  - FALL [None]
  - GAIT DISTURBANCE [None]
  - MUSCULOSKELETAL STIFFNESS [None]
  - PAIN IN EXTREMITY [None]
